FAERS Safety Report 5959783-1 (Version None)
Quarter: 2008Q4

REPORT INFORMATION
  Report Type: 
  Country: None (occurrence: None)
  Receive Date: 20081120
  Receipt Date: 20081111
  Transmission Date: 20090506
  Serious: Yes (Other)
  Sender: FDA-Public Use
  Company Number: A0679832A

PATIENT
  Sex: Female

DRUGS (2)
  1. PAXIL [Suspect]
     Indication: DEPRESSION
     Dosage: 20MG PER DAY
     Dates: start: 20021101, end: 20050101
  2. PAXIL CR [Suspect]
     Indication: DEPRESSION
     Dates: start: 20020919

REACTIONS (7)
  - ADRENOGENITAL SYNDROME [None]
  - ANAEMIA NEONATAL [None]
  - DRUG EXPOSURE DURING PREGNANCY [None]
  - MULTIPLE CONGENITAL ABNORMALITIES [None]
  - PATENT DUCTUS ARTERIOSUS [None]
  - RESPIRATORY DISTRESS [None]
  - RETINOPATHY OF PREMATURITY [None]
